FAERS Safety Report 15204911 (Version 1)
Quarter: 2018Q3

REPORT INFORMATION
  Report Type: Spontaneous
  Country: DE (occurrence: DE)
  Receive Date: 20180726
  Receipt Date: 20180726
  Transmission Date: 20181010
  Serious: Yes (Congenital Anomaly)
  Sender: FDA-Public Use
  Company Number: DE-BAUSCH-BL-2018-019946

PATIENT
  Age: 1 Day
  Sex: Male
  Weight: 2.68 kg

DRUGS (4)
  1. VENLAFAXINE [Suspect]
     Active Substance: VENLAFAXINE HYDROCHLORIDE
     Indication: ANXIETY DISORDER
     Dosage: 150 (MG/D) / INITIAL 125MG/D, DOSAGE INCREASE 150MG/D, NOT SURE IF DOSAGE REDUCTION BEFORE DELIVERY
     Route: 064
     Dates: start: 20160901, end: 20170426
  2. METOPROLOL. [Concomitant]
     Active Substance: METOPROLOL
     Indication: TACHYCARDIA
     Dosage: 47.5 MG/D
     Route: 064
  3. PROTAPHANE [Concomitant]
     Active Substance: INSULIN HUMAN
     Indication: GESTATIONAL DIABETES
     Route: 064
  4. FEMIBION PREGNANCY 1 [Concomitant]
     Indication: PROPHYLAXIS OF NEURAL TUBE DEFECT
     Dosage: 0.8 MG/D
     Route: 064
     Dates: start: 20160901, end: 20170426

REACTIONS (4)
  - External auditory canal atresia [Not Recovered/Not Resolved]
  - Microtia [Not Recovered/Not Resolved]
  - Meningocele [Recovered/Resolved with Sequelae]
  - Patent ductus arteriosus [Recovered/Resolved]

NARRATIVE: CASE EVENT DATE: 20170426
